FAERS Safety Report 20994993 (Version 4)
Quarter: 2022Q4

REPORT INFORMATION
  Report Type: Spontaneous
  Country: JP (occurrence: None)
  Receive Date: 20220622
  Receipt Date: 20221208
  Transmission Date: 20230113
  Serious: Yes (Other)
  Sender: FDA-Public Use
  Company Number: 2022A185724

PATIENT
  Age: 19711 Day
  Sex: Female
  Weight: 56 kg

DRUGS (6)
  1. LYNPARZA [Suspect]
     Active Substance: OLAPARIB
     Indication: Ovarian cancer
     Route: 048
     Dates: start: 20220405, end: 20220510
  2. SODIUM FERROUS CITRATE [Concomitant]
     Active Substance: SODIUM FERROUS CITRATE
     Indication: Anaemia
     Route: 048
     Dates: start: 20220329, end: 20220510
  3. METOCLOPRAMIDE [Concomitant]
     Active Substance: METOCLOPRAMIDE
     Indication: Prophylaxis
     Route: 048
     Dates: start: 20220405, end: 20220510
  4. PREGABALIN [Concomitant]
     Active Substance: PREGABALIN
     Indication: Neuropathy peripheral
     Route: 048
     Dates: start: 20211207, end: 20220829
  5. AVASTIN [Concomitant]
     Active Substance: BEVACIZUMAB
     Indication: Ovarian cancer
     Route: 041
     Dates: start: 20211221
  6. BENIDIPINE HYDROCHLORIDE [Concomitant]
     Active Substance: BENIDIPINE HYDROCHLORIDE
     Indication: Hypertension
     Route: 048
     Dates: start: 20220125

REACTIONS (4)
  - Vasculitis [Recovered/Resolved]
  - Glossodynia [Recovered/Resolved]
  - Taste disorder [Recovered/Resolved]
  - Stomatitis [Recovered/Resolved]

NARRATIVE: CASE EVENT DATE: 20220407
